FAERS Safety Report 23114838 (Version 1)
Quarter: 2023Q4

REPORT INFORMATION
  Report Type: Spontaneous
  Country: FR (occurrence: FR)
  Receive Date: 20231027
  Receipt Date: 20231027
  Transmission Date: 20240110
  Serious: Yes (Life-Threatening)
  Sender: FDA-Public Use
  Company Number: None

PATIENT
  Age: 56 Year
  Sex: Female
  Weight: 127 kg

DRUGS (4)
  1. CLINDAMYCIN PHOSPHATE [Suspect]
     Active Substance: CLINDAMYCIN PHOSPHATE
     Indication: Incorrect route of product administration
     Dosage: 300 MG 2GEL TOTAL
     Route: 034
     Dates: start: 20230801, end: 20230801
  2. DIATRIZOATE MEGLUMINE\DIATRIZOATE SODIUM [Suspect]
     Active Substance: DIATRIZOATE MEGLUMINE\DIATRIZOATE SODIUM
     Indication: X-ray gastrointestinal tract
     Dosage: 80 ML1 TIMES
     Route: 034
     Dates: start: 20230801, end: 20230801
  3. LEUCOVORIN CALCIUM [Suspect]
     Active Substance: LEUCOVORIN CALCIUM
     Indication: Incorrect route of product administration
     Dosage: 5 MG?1 TIME
     Route: 034
     Dates: start: 20230801, end: 20230801
  4. RAMIPRIL [Suspect]
     Active Substance: RAMIPRIL
     Indication: Incorrect route of product administration
     Dosage: 2.5 MG TOTAL
     Route: 034
     Dates: start: 20230801, end: 20230801

REACTIONS (2)
  - Incorrect route of product administration [Recovered/Resolved]
  - Acute respiratory distress syndrome [Recovered/Resolved]

NARRATIVE: CASE EVENT DATE: 20230801
